FAERS Safety Report 6436218-6 (Version None)
Quarter: 2009Q4

REPORT INFORMATION
  Report Type: 
  Country: None (occurrence: None)
  Receive Date: 20091111
  Receipt Date: 20091102
  Transmission Date: 20100525
  Serious: Yes (Other)
  Sender: FDA-Public Use
  Company Number: JP-ROCHE-667139

PATIENT
  Sex: Male

DRUGS (2)
  1. TAMIFLU [Suspect]
     Indication: INFLUENZA
     Route: 048
     Dates: start: 20091029, end: 20091029
  2. CLARITH [Concomitant]
     Dosage: DOSE FORM: ORAL FORMULATION.
     Route: 048

REACTIONS (1)
  - ABNORMAL BEHAVIOUR [None]
